FAERS Safety Report 6214836-8 (Version None)
Quarter: 2009Q2

REPORT INFORMATION
  Report Type: 
  Country: None (occurrence: None)
  Receive Date: 20090601
  Receipt Date: 20090107
  Transmission Date: 20091009
  Serious: Yes (Hospitalization, Other)
  Sender: FDA-Public Use
  Company Number: 239550

PATIENT
  Age: 63 Year
  Sex: Female
  Weight: 83 kg

DRUGS (20)
  1. ACTIVELLA [Suspect]
     Indication: MENOPAUSAL SYMPTOMS
     Dosage: 1MG/0.5 MG, ORAL
     Route: 048
     Dates: start: 20021214, end: 20030323
  2. PREMPRO [Suspect]
     Indication: MENOPAUSAL SYMPTOMS
     Dosage: 0.625 MG/2.5 MG
     Dates: start: 19970624, end: 20020916
  3. PROVERA [Suspect]
     Indication: MENOPAUSAL SYMPTOMS
     Dosage: 2.5 MG
     Dates: start: 19900817, end: 19921222
  4. PROVERA [Suspect]
     Indication: MENOPAUSAL SYMPTOMS
     Dosage: 2.5 MG
     Dates: start: 19930201, end: 19960101
  5. PROVERA [Suspect]
     Indication: MENOPAUSAL SYMPTOMS
     Dosage: 2.5 MG
     Dates: start: 19960701, end: 19970624
  6. ESTRACE [Suspect]
     Indication: MENOPAUSAL SYMPTOMS
     Dosage: 1 MG, 1
     Dates: start: 19900817, end: 19921222
  7. ESTRACE [Suspect]
     Indication: MENOPAUSAL SYMPTOMS
     Dosage: 1 MG, 1
     Dates: start: 19930201, end: 19960101
  8. ESTRACE [Suspect]
     Indication: MENOPAUSAL SYMPTOMS
     Dosage: 1 MG, 1
     Dates: start: 19960701, end: 19970624
  9. AVANDIA [Concomitant]
  10. GLUCOTROL XL [Concomitant]
  11. LIPITOR [Concomitant]
  12. LISINOPRIL [Concomitant]
  13. GLUCOPHAGE /00082701/ (METFORMIN) [Concomitant]
  14. ACTOS /01460201/ (PIOGLITAZONE) [Concomitant]
  15. ZESTRIL [Concomitant]
  16. TOPROL-XL [Concomitant]
  17. NPH INSULIN [Concomitant]
  18. METFORMIN HCL [Concomitant]
  19. ATENOLOL [Concomitant]
  20. ALDACTONE [Concomitant]

REACTIONS (1)
  - BREAST CANCER [None]
